FAERS Safety Report 16093797 (Version 4)
Quarter: 2022Q2

REPORT INFORMATION
  Report Type: Other
  Country: US (occurrence: GB)
  Receive Date: 20190320
  Receipt Date: 20220415
  Transmission Date: 20220721
  Serious: Yes (Hospitalization, Other)
  Sender: FDA-Public Use
  Company Number: US-MACLEODS PHARMACEUTICALS US LTD-MAC2019020505

PATIENT

DRUGS (3)
  1. ARIPIPRAZOLE [Suspect]
     Active Substance: ARIPIPRAZOLE
     Indication: Product used for unknown indication
     Dosage: UNK (STARTED IN FEB 2019)
     Route: 065
     Dates: end: 20190225
  2. CLOZARIL [Suspect]
     Active Substance: CLOZAPINE
     Indication: Schizophrenia
     Dosage: 15 MILLIGRAM
     Route: 048
     Dates: start: 20020712
  3. CLOZARIL [Suspect]
     Active Substance: CLOZAPINE
     Dosage: 15 MILLIGRAM, QD
     Route: 048
     Dates: end: 20190220

REACTIONS (6)
  - Malaise [Unknown]
  - Blood test abnormal [Unknown]
  - Hyperlipidaemia [Unknown]
  - Tachycardia [Unknown]
  - Hypertension [Unknown]
  - Hospitalisation [Unknown]

NARRATIVE: CASE EVENT DATE: 20190220
